FAERS Safety Report 26213894 (Version 1)
Quarter: 2025Q4

REPORT INFORMATION
  Report Type: Spontaneous
  Country: KR (occurrence: KR)
  Receive Date: 20251230
  Receipt Date: 20251230
  Transmission Date: 20260117
  Serious: Yes (Other)
  Sender: MYLAN
  Company Number: KR-MYLANLABS-2025M1109792

PATIENT
  Sex: Male
  Weight: 55 kg

DRUGS (2)
  1. CELEBREX [Suspect]
     Active Substance: CELECOXIB
     Indication: Renal cyst
     Dosage: 1 DOSAGE FORM, BID
     Dates: start: 20190514, end: 20190514
  2. GABAPENTIN [Suspect]
     Active Substance: GABAPENTIN
     Indication: Renal cyst
     Dosage: 1 DOSAGE FORM, BID
     Dates: start: 20190514, end: 20190514

REACTIONS (3)
  - Vomiting [Recovered/Resolved]
  - Dyspnoea [Recovered/Resolved]
  - Product use in unapproved indication [Unknown]

NARRATIVE: CASE EVENT DATE: 20190514
